FAERS Safety Report 22089014 (Version 1)
Quarter: 2023Q1

REPORT INFORMATION
  Report Type: Spontaneous
  Country: US (occurrence: US)
  Receive Date: 20230313
  Receipt Date: 20230313
  Transmission Date: 20230418
  Serious: Yes (Other)
  Sender: FDA-Public Use
  Company Number: US-MYLANLABS-2023M1026783

PATIENT
  Age: 3 Year
  Sex: Female

DRUGS (2)
  1. MITOXANTRONE [Suspect]
     Active Substance: MITOXANTRONE HYDROCHLORIDE
     Indication: Acute myeloid leukaemia
     Dosage: 48 MILLIGRAM/SQ. METER
     Route: 065
  2. DAUNORUBICIN [Suspect]
     Active Substance: DAUNORUBICIN
     Indication: Acute myeloid leukaemia
     Dosage: 300 MILLIGRAM/SQ. METER; RECEIVED OVER TWO COURSES
     Route: 065

REACTIONS (2)
  - Cardiotoxicity [Recovering/Resolving]
  - Off label use [Unknown]
